FAERS Safety Report 9332829 (Version 2)
Quarter: 2013Q3

REPORT INFORMATION
  Report Type: Spontaneous
  Country: US (occurrence: US)
  Receive Date: 20130606
  Receipt Date: 20130718
  Transmission Date: 20140515
  Serious: Yes (Death, Congenital Anomaly, Other)
  Sender: FDA-Public Use
  Company Number: US-PFIZER INC-2013169928

PATIENT
  Sex: Female

DRUGS (17)
  1. ZOLOFT [Suspect]
     Dosage: UNK
     Route: 064
     Dates: start: 200306, end: 200407
  2. SERTRALINE HCL [Suspect]
     Dosage: UNK
     Route: 064
     Dates: start: 200306, end: 200407
  3. ORTHO TRI-CYCLEN 28 [Concomitant]
     Dosage: UNK
     Route: 064
  4. PRENATAL 19 [Concomitant]
     Dosage: UNK
     Route: 064
  5. AMOXICILLIN [Concomitant]
     Dosage: 500 MG, UNK
     Route: 064
  6. FLONASE [Concomitant]
     Dosage: UNK
     Route: 064
  7. HYDROCODONE/APAP [Concomitant]
     Dosage: UNK
     Route: 064
  8. RANITIDINE [Concomitant]
     Dosage: 150 MG, UNK
     Route: 064
  9. MECLIZINE [Concomitant]
     Dosage: UNK
     Route: 064
  10. VITAMIN B6 [Concomitant]
     Dosage: UNK
     Route: 064
  11. METRONIDAZOLE [Concomitant]
     Dosage: 500 MG, UNK
     Route: 064
  12. DIFLUCAN [Concomitant]
     Dosage: 150 MG, UNK
     Route: 064
  13. SODIUM CITRATE [Concomitant]
     Dosage: UNK
     Route: 064
  14. DOCUSATE [Concomitant]
     Dosage: UNK
     Route: 064
  15. NALBUPHINE [Concomitant]
     Dosage: UNK
     Route: 064
  16. DIPHENHYDRAMINE [Concomitant]
     Dosage: UNK
     Route: 064
  17. TERBUTALINE [Concomitant]
     Dosage: UNK
     Route: 064

REACTIONS (3)
  - Maternal exposure during pregnancy [Fatal]
  - Fallot^s tetralogy [Fatal]
  - Premature baby [Unknown]
